FAERS Safety Report 5153027-9 (Version None)
Quarter: 2006Q4

REPORT INFORMATION
  Report Type: 
  Country: None (occurrence: None)
  Receive Date: 20061117
  Receipt Date: 20060601
  Transmission Date: 20070319
  Serious: Yes (Hospitalization, Other)
  Sender: FDA-Public Use
  Company Number: US-BAYER-200613793BWH

PATIENT
  Age: 42 Year
  Sex: Male
  Weight: 69 kg

DRUGS (14)
  1. CIPRO [Suspect]
     Indication: DRUG USE FOR UNKNOWN INDICATION
     Dosage: TOTAL DAILY DOSE: 1000 MG  UNIT DOSE: 500 MG
     Route: 048
     Dates: start: 19980101, end: 19980101
  2. CIPRO XR [Suspect]
     Indication: DRUG USE FOR UNKNOWN INDICATION
     Dosage: TOTAL DAILY DOSE: 1000 MG  UNIT DOSE: 1000 MG
     Route: 048
     Dates: start: 20040410, end: 20040414
  3. CIPRO XR [Suspect]
     Dosage: TOTAL DAILY DOSE: 1000 MG  UNIT DOSE: 1000 MG
     Route: 048
     Dates: start: 20040412, end: 20040421
  4. NEURONTIN [Concomitant]
     Indication: PAIN
     Dosage: TOTAL DAILY DOSE: 1200 MG  UNIT DOSE: 600 MG
  5. EFFEXOR XR [Concomitant]
     Indication: DEPRESSION
     Dosage: TOTAL DAILY DOSE: 75 MG  UNIT DOSE: 75 MG
  6. ATIVAN [Concomitant]
     Indication: ANXIETY
     Dosage: TOTAL DAILY DOSE: 3 MG  UNIT DOSE: 1 MG
  7. NEXIUM [Concomitant]
     Indication: GASTROOESOPHAGEAL REFLUX DISEASE
     Dosage: TOTAL DAILY DOSE: 40 MG  UNIT DOSE: 40 MG
  8. DURAGESIC-100 [Concomitant]
     Indication: PAIN
     Dosage: TOTAL DAILY DOSE: 50 ?G  UNIT DOSE: 50 ?G
     Route: 062
  9. LORCET-HD [Concomitant]
     Indication: PAIN
  10. COMBUNOX [Concomitant]
     Indication: PAIN
  11. SKELAXIN [Concomitant]
     Indication: PAIN
  12. FLEXERIL [Concomitant]
     Indication: PAIN
  13. TEQUIN [Concomitant]
  14. LEVAQUIN [Concomitant]

REACTIONS (32)
  - AGGRESSION [None]
  - ARTHRALGIA [None]
  - DEPRESSION [None]
  - DYSKINESIA [None]
  - GAIT DISTURBANCE [None]
  - GUN SHOT WOUND [None]
  - HYPOTONIA [None]
  - INSOMNIA [None]
  - LIMB DISCOMFORT [None]
  - LIP SWELLING [None]
  - MEMORY IMPAIRMENT [None]
  - MENTAL STATUS CHANGES [None]
  - MIGRAINE [None]
  - MOOD SWINGS [None]
  - MUSCLE INJURY [None]
  - MUSCLE RUPTURE [None]
  - MUSCLE SPASMS [None]
  - MUSCLE TWITCHING [None]
  - MYALGIA [None]
  - NIGHTMARE [None]
  - ONYCHOCLASIS [None]
  - PAIN [None]
  - PANIC ATTACK [None]
  - PERSONALITY CHANGE [None]
  - RASH GENERALISED [None]
  - RECTAL HAEMORRHAGE [None]
  - SKIN LESION [None]
  - SUICIDE ATTEMPT [None]
  - TENDON CALCIFICATION [None]
  - TENDON RUPTURE [None]
  - TENDONITIS [None]
  - TREMOR [None]
